FAERS Safety Report 10504357 (Version 1)
Quarter: 2014Q4

REPORT INFORMATION
  Report Type: Spontaneous
  Country: IT (occurrence: IT)
  Receive Date: 20141008
  Receipt Date: 20141008
  Transmission Date: 20150528
  Serious: Yes (Death)
  Sender: FDA-Public Use
  Company Number: IT-ELI_LILLY_AND_COMPANY-IT201410000212

PATIENT
  Age: 35 Year
  Sex: Male
  Weight: 160 kg

DRUGS (7)
  1. DISULFIRAM. [Concomitant]
     Active Substance: DISULFIRAM
     Dosage: 400 MG, UNKNOWN
  2. INVEGA [Suspect]
     Active Substance: PALIPERIDONE
     Indication: SCHIZOPHRENIA
     Dosage: 12 MG, QD
     Route: 048
     Dates: start: 20131107, end: 20140623
  3. CYMBALTA [Suspect]
     Active Substance: DULOXETINE HYDROCHLORIDE
     Indication: DEPRESSION
     Dosage: 60 MG, QD
     Route: 048
     Dates: start: 20140301, end: 20140623
  4. ALCOVER [Concomitant]
     Active Substance: SODIUM OXYBATE
     Dosage: 20 ML, UNKNOWN
     Route: 048
  5. BROTIZOLAM [Concomitant]
     Active Substance: BROTIZOLAM
     Dosage: 0.25 MG, UNKNOWN
     Route: 065
  6. RIVOTRIL [Concomitant]
     Active Substance: CLONAZEPAM
     Indication: ANXIETY
     Dosage: 8 MG, UNKNOWN
     Route: 048
     Dates: start: 20131213, end: 20140623
  7. LARGACTIL [Suspect]
     Active Substance: CHLORPROMAZINE
     Indication: ANXIETY
     Dosage: 600 MG, QD
     Route: 048
     Dates: start: 20140301, end: 20140623

REACTIONS (1)
  - Death [Fatal]

NARRATIVE: CASE EVENT DATE: 20140623
